FAERS Safety Report 8678339 (Version 2)
Quarter: 2012Q4

REPORT INFORMATION
  Report Type: 
  Country: US (occurrence: US)
  Receive Date: 20120723
  Receipt Date: 20121028
  Transmission Date: 20130627
  Serious: Yes (Other)
  Sender: FDA-Public Use
  Company Number: US-JNJFOC-20120707563

PATIENT
  Sex: Female
  Weight: 52.62 kg

DRUGS (3)
  1. REMICADE [Suspect]
     Indication: CROHN^S DISEASE
     Route: 042
     Dates: start: 2004, end: 2012
  2. 6-MERCAPTOPURINE [Suspect]
     Indication: CROHN^S DISEASE
     Route: 048
     Dates: start: 2000, end: 2012
  3. ENTOCORT [Concomitant]
     Indication: CROHN^S DISEASE
     Route: 048
     Dates: start: 2000, end: 2012

REACTIONS (1)
  - Adenocarcinoma of colon [Not Recovered/Not Resolved]
